FAERS Safety Report 11170017 (Version 2)
Quarter: 2015Q2

REPORT INFORMATION
  Report Type: Spontaneous
  Country: IT (occurrence: IT)
  Receive Date: 20150608
  Receipt Date: 20150611
  Transmission Date: 20150821
  Serious: Yes (Other)
  Sender: FDA-Public Use
  Company Number: IT-ROCHE-1588867

PATIENT
  Age: 32 Year
  Sex: Female

DRUGS (4)
  1. LEXOTAN [Suspect]
     Active Substance: BROMAZEPAM
     Indication: MENTAL DISORDER
     Dosage: 2.5MG/ML ORAL DROPS, SOLUTION BOTTLE WITH DROPPER
     Route: 048
     Dates: start: 20150428, end: 20150428
  2. RIVOTRIL [Suspect]
     Active Substance: CLONAZEPAM
     Indication: MENTAL DISORDER
     Dosage: 0.5 MG TABLETS 20 TABLETS
     Route: 048
     Dates: start: 20150428, end: 20150428
  3. VALIUM [Suspect]
     Active Substance: DIAZEPAM
     Indication: MENTAL DISORDER
     Dosage: ^5 MG/ML ORAL DROPS, SOLUTION^ 20 ML BOTTLE
     Route: 048
     Dates: start: 20150428, end: 20150428
  4. XANAX [Suspect]
     Active Substance: ALPRAZOLAM
     Indication: MENTAL DISORDER
     Dosage: 0.5 MG TABLETS 20 TABLETS
     Route: 048
     Dates: start: 20150428, end: 20150428

REACTIONS (5)
  - Crying [Recovered/Resolved]
  - Tremor [Recovered/Resolved]
  - Agitation [Recovered/Resolved]
  - Mental disorder [Recovered/Resolved]
  - Toxicity to various agents [Recovered/Resolved]

NARRATIVE: CASE EVENT DATE: 20150428
